FAERS Safety Report 19286546 (Version 1)
Quarter: 2021Q2

REPORT INFORMATION
  Report Type: Spontaneous
  Country: US (occurrence: US)
  Receive Date: 20210521
  Receipt Date: 20210521
  Transmission Date: 20210717
  Serious: No
  Sender: FDA-Public Use
  Company Number: US-RADIUS HEALTH INC.-2020US002940

PATIENT
  Age: 73 Year
  Sex: Female

DRUGS (1)
  1. TYMLOS [Suspect]
     Active Substance: ABALOPARATIDE
     Indication: PRODUCT USED FOR UNKNOWN INDICATION
     Dosage: 80 MCG, QOD
     Route: 058
     Dates: start: 20200805

REACTIONS (16)
  - Intentional product misuse [Unknown]
  - Hot flush [Unknown]
  - Chills [Unknown]
  - Nausea [Unknown]
  - Dizziness [Unknown]
  - Product storage error [Recovered/Resolved]
  - Musculoskeletal chest pain [Unknown]
  - Headache [Unknown]
  - Influenza like illness [Unknown]
  - Insomnia [Unknown]
  - Confusional state [Unknown]
  - Vertigo [Unknown]
  - Product quality issue [Unknown]
  - Bone pain [Unknown]
  - Night sweats [Unknown]
  - Incorrect product administration duration [Unknown]

NARRATIVE: CASE EVENT DATE: 20200805
